FAERS Safety Report 8521525-3 (Version None)
Quarter: 2012Q3

REPORT INFORMATION
  Report Type: 
  Country: None (occurrence: None)
  Receive Date: 20120719
  Receipt Date: 20120712
  Transmission Date: 20120928
  Serious: Yes (Hospitalization, Other)
  Sender: FDA-Public Use
  Company Number: PHHY2012BR060390

PATIENT
  Sex: Female
  Weight: 67 kg

DRUGS (7)
  1. CLOXAZOLAM [Concomitant]
     Dosage: 2 MG
  2. ONBREZ [Suspect]
     Indication: EMPHYSEMA
     Dosage: 150 UG, ONE INHALATION A DAY
  3. SULPIRIDE [Concomitant]
     Indication: INSOMNIA
     Dosage: 200 MG, DOSE OF ONE TABLET AT NIGHT IN USE FOR MORE THAN 8 YEARS.
     Route: 048
  4. ONBREZ [Suspect]
     Indication: DYSPNOEA
     Dosage: 300 UG (150 UG IN MANE AND 150 UG NOCTE)
  5. ALENIA [Suspect]
     Indication: EMPHYSEMA
  6. ALENIA [Suspect]
     Indication: DYSPNOEA
     Dosage: 400 UG, ONE INHALATION IN MORNING AND ONE IN NIGHT
  7. GINKGO BILOBA [Concomitant]
     Dosage: 120 MG, UNK

REACTIONS (5)
  - FATIGUE [None]
  - BREAST CANCER [None]
  - COUGH [None]
  - DRUG PRESCRIBING ERROR [None]
  - BREAST CANCER FEMALE [None]
